FAERS Safety Report 13023803 (Version 1)
Quarter: 2016Q4

REPORT INFORMATION
  Report Type: Spontaneous
  Country: GB (occurrence: GB)
  Receive Date: 20161213
  Receipt Date: 20161213
  Transmission Date: 20170207
  Serious: Yes (Hospitalization, Other)
  Sender: FDA-Public Use
  Company Number: GB-TEVA-717875ACC

PATIENT
  Age: 68 Year
  Sex: Female
  Weight: 64 kg

DRUGS (7)
  1. FUROSEMIDE. [Concomitant]
     Active Substance: FUROSEMIDE
  2. PREDNISOLONE. [Concomitant]
     Active Substance: PREDNISOLONE
  3. WARFARIN [Suspect]
     Active Substance: WARFARIN
     Indication: MYOCARDIAL INFARCTION
     Dosage: 1MG - 5MG
     Route: 048
     Dates: start: 20161024
  4. GABAPENTIN. [Concomitant]
     Active Substance: GABAPENTIN
  5. PARACETAMOL [Concomitant]
     Active Substance: ACETAMINOPHEN
  6. AMIODARONE [Concomitant]
     Active Substance: AMIODARONE
  7. OMEPRAZOLE. [Concomitant]
     Active Substance: OMEPRAZOLE

REACTIONS (2)
  - Vomiting [Unknown]
  - Cough [Not Recovered/Not Resolved]

NARRATIVE: CASE EVENT DATE: 20161030
